FAERS Safety Report 4761233-8 (Version None)
Quarter: 2005Q3

REPORT INFORMATION
  Report Type: 
  Country: None (occurrence: None)
  Receive Date: 20050830
  Receipt Date: 20050719
  Transmission Date: 20060218
  Serious: No
  Sender: FDA-Public Use
  Company Number: FABR-11175

PATIENT
  Age: 50 Year
  Sex: Female
  Weight: 99.7913 kg

DRUGS (7)
  1. FABRAZYME [Suspect]
     Indication: FABRY'S DISEASE
     Dosage: 100 MG Q2WKS IV
     Route: 042
  2. FABRAZYME [Suspect]
     Indication: FABRY'S DISEASE
     Dosage: 125 MG Q2WKS IV
     Route: 042
  3. FABRAZYME [Suspect]
     Indication: FABRY'S DISEASE
     Dosage: 132 MG Q2WKS IV
     Route: 042
     Dates: start: 20040210
  4. TYLENOL [Concomitant]
  5. ULTRAM [Concomitant]
  6. LASIX [Concomitant]
  7. VISTARIL [Concomitant]

REACTIONS (6)
  - ANOREXIA [None]
  - DIZZINESS [None]
  - HEADACHE [None]
  - HYPERHIDROSIS [None]
  - HYPOTENSION [None]
  - VOMITING [None]
